FAERS Safety Report 10084374 (Version 2)
Quarter: 2014Q2

REPORT INFORMATION
  Report Type: Spontaneous
  Country: US (occurrence: US)
  Receive Date: 20140417
  Receipt Date: 20140430
  Transmission Date: 20141212
  Serious: No
  Sender: FDA-Public Use
  Company Number: US-009507513-1404USA007001

PATIENT
  Sex: Female

DRUGS (7)
  1. OXYTROL FOR WOMEN [Suspect]
     Indication: INCONTINENCE
     Dosage: 1 DF, Q4D
     Route: 062
     Dates: start: 201401, end: 201404
  2. PROZAC [Concomitant]
     Indication: BIPOLAR DISORDER
     Dosage: UNK, UNKNOWN
  3. BUSPIRONE HYDROCHLORIDE [Concomitant]
     Indication: HYPERTENSION
     Dosage: UNK, UNKNOWN
  4. BYSTOLIC [Concomitant]
     Indication: HYPERTENSION
     Dosage: UNK, UNKNOWN
  5. METFORMIN [Concomitant]
     Indication: DIABETES MELLITUS
     Dosage: UNK, UNKNOWN
  6. CINNAMON [Concomitant]
     Indication: DIABETES MELLITUS
     Dosage: UNK, UNKNOWN
  7. HYDROCHLOROTHIAZIDE (+) TRIAMTERENE [Concomitant]
     Indication: PRODUCT USED FOR UNKNOWN INDICATION
     Dosage: UNK, UNKNOWN

REACTIONS (3)
  - Wrong technique in drug usage process [Unknown]
  - Off label use [Unknown]
  - Drug effect decreased [Unknown]
